APPROVED DRUG PRODUCT: DEXTROSE 5% IN PLASTIC CONTAINER
Active Ingredient: DEXTROSE
Strength: 5GM/100ML
Dosage Form/Route: INJECTABLE;INJECTION
Application: N019971 | Product #001
Applicant: DHL LABORATORIES INC
Approved: Sep 28, 1995 | RLD: No | RS: No | Type: DISCN